FAERS Safety Report 8511052-1 (Version None)
Quarter: 2012Q3

REPORT INFORMATION
  Report Type: 
  Country: None (occurrence: None)
  Receive Date: 20120716
  Receipt Date: 20120711
  Transmission Date: 20120928
  Serious: Yes (Hospitalization)
  Sender: FDA-Public Use
  Company Number: US-AMGEN-USASP2011026275

PATIENT
  Age: 46 Year
  Sex: Female

DRUGS (9)
  1. ENBREL [Suspect]
     Dosage: 25 MG, 2 TIMES/WK
     Route: 058
     Dates: start: 20001006, end: 20030807
  2. REMICADE [Concomitant]
     Dosage: UNK
     Dates: start: 20030819, end: 20040801
  3. AZULFIDINE [Concomitant]
     Dosage: UNK
     Dates: start: 19951206, end: 20040801
  4. PREDNISONE [Concomitant]
     Dosage: UNK
     Dates: start: 19951206
  5. ENBREL [Suspect]
     Dosage: 50 MG, QWK
     Dates: start: 19981101, end: 20110507
  6. METHOTREXATE [Concomitant]
     Dosage: UNK
     Dates: start: 20031001
  7. ENBREL [Suspect]
     Indication: RHEUMATOID ARTHRITIS
     Dosage: 50 MG, QWK
     Route: 058
     Dates: start: 20040317, end: 20110509
  8. ARAVA [Suspect]
     Dosage: 10 MG, UNK
     Dates: end: 20070611
  9. PLAQUENIL [Concomitant]
     Dosage: UNK
     Dates: start: 19951206

REACTIONS (6)
  - MOBILITY DECREASED [None]
  - PAIN IN EXTREMITY [None]
  - ALOPECIA [None]
  - JOINT SWELLING [None]
  - ARTHRALGIA [None]
  - OEDEMA PERIPHERAL [None]
